FAERS Safety Report 9045946 (Version 1)
Quarter: 2013Q1

REPORT INFORMATION
  Report Type: Report from Study
  Country: US (occurrence: US)
  Receive Date: 20130201
  Receipt Date: 20130201
  Transmission Date: 20140127
  Serious: No
  Sender: FDA-Public Use
  Company Number: US-ABBOTT-12P-163-1019070-00

PATIENT
  Age: 36 Year
  Sex: 0

DRUGS (5)
  1. HUMIRA [Suspect]
     Indication: COLITIS ULCERATIVE
     Route: 058
     Dates: start: 20121109, end: 20121109
  2. HUMIRA [Suspect]
     Dosage: INITAL DOSE
     Route: 058
     Dates: start: 20121123
  3. PREDNISONE [Concomitant]
     Indication: PRODUCT USED FOR UNKNOWN INDICATION
     Dosage: DAILY
  4. ALBUTEROL [Concomitant]
     Indication: ASTHMA
     Route: 055
  5. METOPROLOL [Concomitant]
     Indication: HEART RATE INCREASED
     Dosage: IN THE MORNING

REACTIONS (3)
  - Candida infection [Recovering/Resolving]
  - Weight decreased [Recovering/Resolving]
  - Colitis ulcerative [Recovering/Resolving]
